FAERS Safety Report 23682428 (Version 2)
Quarter: 2024Q2

REPORT INFORMATION
  Report Type: Spontaneous
  Country: FR (occurrence: FR)
  Receive Date: 20240328
  Receipt Date: 20240403
  Transmission Date: 20240716
  Serious: Yes (Hospitalization, Other)
  Sender: FDA-Public Use
  Company Number: FR-PFIZER INC-2006092291

PATIENT
  Age: 90 Year
  Sex: Female

DRUGS (2)
  1. MEDROL [Interacting]
     Active Substance: METHYLPREDNISOLONE
     Dosage: 4 MG, 1X/DAY
     Route: 048
     Dates: start: 20030504
  2. SINTROM [Interacting]
     Active Substance: ACENOCOUMAROL
     Dosage: UNK, 1X/DAY
     Dates: start: 20030601, end: 20031010

REACTIONS (2)
  - Gastrointestinal haemorrhage [Recovered/Resolved]
  - Drug interaction [Recovered/Resolved]

NARRATIVE: CASE EVENT DATE: 20030101
